FAERS Safety Report 9835854 (Version 2)
Quarter: 2014Q1

REPORT INFORMATION
  Report Type: Spontaneous
  Country: JP (occurrence: JP)
  Receive Date: 20140122
  Receipt Date: 20140122
  Transmission Date: 20141002
  Serious: Yes (Hospitalization)
  Sender: FDA-Public Use
  Company Number: PHHY2013JP145516

PATIENT
  Age: 18 Month
  Sex: 0

DRUGS (2)
  1. DIOVAN [Suspect]
     Dosage: 2 DF, (80 MG)
     Route: 048
     Dates: start: 20131209
  2. AMLODIN [Suspect]
     Dosage: 2 DF, (5 MG)
     Route: 048
     Dates: start: 20131209

REACTIONS (2)
  - Accidental exposure to product [Recovered/Resolved]
  - Blood pressure systolic decreased [Recovered/Resolved]
